FAERS Safety Report 6114733-2 (Version None)
Quarter: 2009Q1

REPORT INFORMATION
  Report Type: 
  Country: None (occurrence: None)
  Receive Date: 20090313
  Receipt Date: 20090304
  Transmission Date: 20090719
  Serious: Yes (Other)
  Sender: FDA-Public Use
  Company Number: PHHY2009DE08001

PATIENT
  Sex: Female
  Weight: 60 kg

DRUGS (2)
  1. ZOMETA [Suspect]
     Indication: METASTASES TO BONE
     Dosage: 4 MG, QMO
     Route: 042
     Dates: start: 20080523, end: 20081124
  2. VINORELBINE [Concomitant]
     Indication: BREAST CANCER
     Dosage: 25 MG/ M^2
     Route: 042
     Dates: start: 20081110, end: 20090218

REACTIONS (1)
  - OSTEONECROSIS [None]
